FAERS Safety Report 20161377 (Version 1)
Quarter: 2021Q4

REPORT INFORMATION
  Report Type: Report from Study
  Country: US (occurrence: US)
  Receive Date: 20211208
  Receipt Date: 20211208
  Transmission Date: 20220303
  Serious: Yes (Hospitalization, Disabling)
  Sender: FDA-Public Use
  Company Number: US-ABBVIE-21K-163-4187544-00

PATIENT
  Age: 76 Year
  Sex: Female

DRUGS (1)
  1. RINVOQ [Suspect]
     Active Substance: UPADACITINIB
     Indication: Rheumatoid arthritis
     Route: 048
     Dates: start: 20211121, end: 20211123

REACTIONS (9)
  - Cerebrovascular accident [Unknown]
  - Hospitalisation [Unknown]
  - Diplopia [Unknown]
  - Dysarthria [Recovered/Resolved]
  - Hypoaesthesia oral [Recovered/Resolved]
  - Mobility decreased [Recovered/Resolved]
  - Walking aid user [Unknown]
  - Vertigo [Unknown]
  - Impaired driving ability [Unknown]

NARRATIVE: CASE EVENT DATE: 20211123
